FAERS Safety Report 8341525-6 (Version None)
Quarter: 2012Q2

REPORT INFORMATION
  Report Type: 
  Country: None (occurrence: None)
  Receive Date: 20120507
  Receipt Date: 20100325
  Transmission Date: 20120825
  Serious: Yes (Death, Hospitalization)
  Sender: FDA-Public Use
  Company Number: US-TEVA-2010001132

PATIENT
  Sex: Female

DRUGS (1)
  1. TREANDA [Suspect]
     Indication: NON-HODGKIN'S LYMPHOMA
     Route: 042
     Dates: start: 20100105, end: 20100118

REACTIONS (2)
  - NEUTROPENIA [None]
  - SEPSIS [None]
